FAERS Safety Report 9436494 (Version 1)
Quarter: 2013Q3

REPORT INFORMATION
  Report Type: Report from Study
  Country: JP (occurrence: JP)
  Receive Date: 20130802
  Receipt Date: 20130802
  Transmission Date: 20140515
  Serious: Yes (Hospitalization)
  Sender: FDA-Public Use
  Company Number: JP-ROCHE-1252094

PATIENT
  Age: 38 Year
  Sex: Male
  Weight: 85 kg

DRUGS (7)
  1. METHOXY POLYETHYLENE GLYCOL-EPOETIN BETA [Suspect]
     Indication: NEPHROGENIC ANAEMIA
     Route: 058
     Dates: start: 20121128, end: 20130410
  2. SODIUM BICARBONATE [Concomitant]
     Indication: PRIMARY AMYLOIDOSIS
     Route: 048
     Dates: end: 20130501
  3. KREMEZIN [Concomitant]
     Indication: PRIMARY AMYLOIDOSIS
     Route: 048
     Dates: end: 20130501
  4. FEBURIC [Concomitant]
     Route: 048
     Dates: end: 20130501
  5. OLMETEC [Concomitant]
     Route: 048
     Dates: end: 20130501
  6. ALFAROL [Concomitant]
     Route: 048
     Dates: start: 20130116
  7. CALTAN [Concomitant]
     Route: 048
     Dates: start: 20130214

REACTIONS (2)
  - Pneumonia bacterial [Recovered/Resolved]
  - Renal failure [Unknown]
